FAERS Safety Report 10544548 (Version 1)
Quarter: 2014Q4

REPORT INFORMATION
  Report Type: Spontaneous
  Country: US (occurrence: None)
  Receive Date: 20141020
  Receipt Date: 20141020
  Transmission Date: 20150529
  Serious: No
  Sender: FDA-Public Use
  Company Number: AEGR000562

PATIENT
  Age: 68 Year
  Sex: Male
  Weight: 77.1 kg

DRUGS (9)
  1. JUXTAPID [Suspect]
     Active Substance: LOMITAPIDE MESYLATE
     Indication: TYPE IIA HYPERLIPIDAEMIA
     Route: 048
     Dates: start: 20140602
  2. LOVAZA [Concomitant]
     Active Substance: OMEGA-3-ACID ETHYL ESTERS
  3. VITAMINE [Concomitant]
  4. OMEGA-3 ACIDS [Concomitant]
     Active Substance: OMEGA-3 FATTY ACIDS
  5. FENOFIBRATE. [Concomitant]
     Active Substance: FENOFIBRATE
  6. TRILIPIX [Concomitant]
     Active Substance: FENOFIBRIC ACID
  7. DIOVAN [Concomitant]
     Active Substance: VALSARTAN
  8. OMEPRAZOLE. [Concomitant]
     Active Substance: OMEPRAZOLE
  9. CRESTOR [Concomitant]
     Active Substance: ROSUVASTATIN CALCIUM

REACTIONS (3)
  - Weight decreased [None]
  - Abdominal pain upper [None]
  - Renal pain [None]

NARRATIVE: CASE EVENT DATE: 20140610
